FAERS Safety Report 11591596 (Version 1)
Quarter: 2015Q4

REPORT INFORMATION
  Report Type: Spontaneous
  Country: AU (occurrence: AU)
  Receive Date: 20151005
  Receipt Date: 20151005
  Transmission Date: 20160304
  Serious: No
  Sender: FDA-Public Use
  Company Number: AU-NOVEN PHARMACEUTICALS, INC.-15AU013530

PATIENT
  Sex: Female
  Weight: 62 kg

DRUGS (1)
  1. ESTRADIOL/NORETHINDRONE ACETATE [Suspect]
     Active Substance: ESTRADIOL\NORETHINDRONE ACETATE
     Indication: MENOPAUSE
     Dosage: UNK UNK, Q 3DAYS
     Route: 062

REACTIONS (4)
  - Urticaria [Not Recovered/Not Resolved]
  - Application site rash [Unknown]
  - Application site pruritus [Unknown]
  - Application site erythema [Not Recovered/Not Resolved]
